FAERS Safety Report 21318233 (Version 1)
Quarter: 2022Q3

REPORT INFORMATION
  Report Type: Spontaneous
  Country: US (occurrence: US)
  Receive Date: 20220911
  Receipt Date: 20220911
  Transmission Date: 20221026
  Serious: No
  Sender: FDA-Public Use
  Company Number: US-SA-SAC20220823001994

PATIENT
  Sex: Female

DRUGS (6)
  1. DUPIXENT [Suspect]
     Active Substance: DUPILUMAB
     Indication: Dermatitis atopic
     Dosage: 300 MG QOW
     Route: 058
     Dates: start: 201810
  2. ADBRY [Suspect]
     Active Substance: TRALOKINUMAB-LDRM
     Dosage: UNK UNK, 1X (LOADING DOSE )
     Dates: start: 20220511, end: 20220511
  3. NYSTATIN AND TRIAMCINOLONE [Concomitant]
     Active Substance: NYSTATIN\TRIAMCINOLONE ACETONIDE
  4. CETIRIX [Concomitant]
     Dosage: UNK UNK, Q12H
  5. DESONIDE [Concomitant]
     Active Substance: DESONIDE
  6. PROTOPIC [Concomitant]
     Active Substance: TACROLIMUS

REACTIONS (2)
  - Skin burning sensation [Unknown]
  - Dermatitis atopic [Unknown]
